FAERS Safety Report 9100975 (Version 1)
Quarter: 2013Q1

REPORT INFORMATION
  Report Type: Spontaneous
  Country: US (occurrence: US)
  Receive Date: 20130214
  Receipt Date: 20130214
  Transmission Date: 20140127
  Serious: Yes (Hospitalization, Other)
  Sender: FDA-Public Use
  Company Number: US-PFIZER INC-2012003438

PATIENT
  Age: 69 Year
  Sex: Female
  Weight: 46.26 kg

DRUGS (2)
  1. EFFEXOR XR [Suspect]
     Dosage: 75 MG, 2X/DAY
     Dates: end: 20120210
  2. OSCAL D [Concomitant]
     Dosage: UNK

REACTIONS (2)
  - Silent myocardial infarction [Unknown]
  - Off label use [Unknown]
